FAERS Safety Report 10061070 (Version 1)
Quarter: 2014Q2

REPORT INFORMATION
  Report Type: Spontaneous
  Country: GB (occurrence: GB)
  Receive Date: 20140405
  Receipt Date: 20140405
  Transmission Date: 20141212
  Serious: Yes (Other)
  Sender: FDA-Public Use
  Company Number: GB-JNJFOC-20140400494

PATIENT
  Age: 3 Year
  Sex: Male

DRUGS (4)
  1. CALPROFEN [Suspect]
     Indication: IMMUNISATION
     Route: 065
  2. CALPROFEN [Suspect]
     Indication: PAIN
     Route: 065
  3. CALPROFEN [Suspect]
     Indication: PYREXIA
     Route: 065
  4. CALPOL SUGAR FREE INFANT SUSPENSION [Concomitant]
     Indication: PRODUCT USED FOR UNKNOWN INDICATION

REACTIONS (1)
  - Coeliac disease [Unknown]
